FAERS Safety Report 20851144 (Version 2)
Quarter: 2022Q2

REPORT INFORMATION
  Report Type: Spontaneous
  Country: US (occurrence: US)
  Receive Date: 20220519
  Receipt Date: 20220601
  Transmission Date: 20220721
  Serious: Yes (Life-Threatening, Hospitalization)
  Sender: FDA-Public Use
  Company Number: US-TEVA-2022-US-2037141

PATIENT
  Age: 64 Year
  Sex: Male

DRUGS (11)
  1. LACTULOSE [Suspect]
     Active Substance: LACTULOSE
     Indication: Encephalopathy
     Route: 065
  2. LACTULOSE [Suspect]
     Active Substance: LACTULOSE
     Dosage: 3 TIMES DAILY
     Route: 065
  3. ACETAMINOPHEN [Suspect]
     Active Substance: ACETAMINOPHEN
     Indication: Pain
     Route: 065
  4. NOREPINEPHRINE [Suspect]
     Active Substance: NOREPINEPHRINE
     Indication: Haemodynamic instability
     Route: 065
  5. NOREPINEPHRINE [Suspect]
     Active Substance: NOREPINEPHRINE
     Indication: Listeriosis
  6. ACETYLCYSTEINE [Suspect]
     Active Substance: ACETYLCYSTEINE
     Indication: Encephalopathy
     Route: 065
  7. RIFAXIMIN [Suspect]
     Active Substance: RIFAXIMIN
     Indication: Encephalopathy
     Route: 065
  8. AMPICILLIN [Suspect]
     Active Substance: AMPICILLIN
     Indication: Listeriosis
     Dosage: 8000 MILLIGRAM DAILY;
     Route: 042
  9. GENTAMICIN [Suspect]
     Active Substance: GENTAMICIN
     Indication: Listeriosis
     Dosage: 80 MILLIGRAM DAILY;
     Route: 065
  10. VANCOMYCIN [Concomitant]
     Active Substance: VANCOMYCIN
     Indication: Evidence based treatment
     Dosage: 1000 MILLIGRAM DAILY;
     Route: 042
  11. CEFEPIME [Concomitant]
     Active Substance: CEFEPIME HYDROCHLORIDE
     Indication: Evidence based treatment
     Dosage: 500 MILLIGRAM DAILY;
     Route: 065

REACTIONS (3)
  - Intentional product misuse [Unknown]
  - Renal impairment [Not Recovered/Not Resolved]
  - Drug ineffective [Unknown]
